FAERS Safety Report 18685136 (Version 1)
Quarter: 2020Q4

REPORT INFORMATION
  Report Type: Report from Study
  Country: US (occurrence: US)
  Receive Date: 20201230
  Receipt Date: 20201230
  Transmission Date: 20210114
  Serious: Yes (Other)
  Sender: FDA-Public Use
  Company Number: US-TEVA-2020-US-1847329

PATIENT
  Age: 16 Year
  Sex: Male

DRUGS (5)
  1. VITAMIN B [Concomitant]
     Active Substance: VITAMIN B
  2. EPA [Concomitant]
  3. CLARAVIS [Suspect]
     Active Substance: ISOTRETINOIN
     Route: 065
     Dates: end: 20201104
  4. CLARAVIS [Suspect]
     Active Substance: ISOTRETINOIN
     Route: 065
  5. VIAMIN D [Concomitant]

REACTIONS (7)
  - Mood altered [Unknown]
  - Decreased interest [Unknown]
  - Suicidal ideation [Unknown]
  - Depression [Unknown]
  - Insomnia [Unknown]
  - Photosensitivity reaction [Recovering/Resolving]
  - Xerosis [Recovering/Resolving]

NARRATIVE: CASE EVENT DATE: 20200630
